FAERS Safety Report 13069277 (Version 1)
Quarter: 2016Q4

REPORT INFORMATION
  Report Type: Spontaneous
  Country: FR (occurrence: FR)
  Receive Date: 20161228
  Receipt Date: 20161228
  Transmission Date: 20170207
  Serious: Yes (Hospitalization, Other)
  Sender: FDA-Public Use
  Company Number: FR-ELI_LILLY_AND_COMPANY-FR201612008703

PATIENT
  Age: 62 Year
  Sex: Male

DRUGS (6)
  1. PARACETAMOL [Concomitant]
     Active Substance: ACETAMINOPHEN
     Dosage: 1 G, EVERY 6 HRS
     Route: 065
  2. RILUTEK [Concomitant]
     Active Substance: RILUZOLE
     Dosage: 1 UNK, EACH MORNING
     Route: 065
  3. CYMBALTA [Suspect]
     Active Substance: DULOXETINE HYDROCHLORIDE
     Dosage: 60 MG, EACH MORNING
     Route: 048
     Dates: start: 201609
  4. CYMBALTA [Suspect]
     Active Substance: DULOXETINE HYDROCHLORIDE
     Indication: PRODUCT USED FOR UNKNOWN INDICATION
     Dosage: 90 MG, EACH MORNING
     Route: 048
     Dates: start: 201609
  5. RILUTEK [Concomitant]
     Active Substance: RILUZOLE
     Dosage: 1 UNK, EACH EVENING
     Route: 065
  6. PARACETAMOL [Concomitant]
     Active Substance: ACETAMINOPHEN
     Indication: PAIN
     Dosage: 1 G, PRN
     Route: 065

REACTIONS (11)
  - Head injury [Unknown]
  - White blood cell count increased [Unknown]
  - Orthostatic hypotension [Recovered/Resolved]
  - Neuralgia [Unknown]
  - Blood creatine phosphokinase increased [Unknown]
  - Fall [Unknown]
  - Fall [Recovered/Resolved]
  - Vertigo [Recovered/Resolved]
  - Balance disorder [Recovered/Resolved]
  - Malaise [Unknown]
  - Troponin increased [Unknown]

NARRATIVE: CASE EVENT DATE: 201609
